FAERS Safety Report 16798542 (Version 1)
Quarter: 2019Q3

REPORT INFORMATION
  Report Type: Spontaneous
  Country: US (occurrence: US)
  Receive Date: 20190912
  Receipt Date: 20190912
  Transmission Date: 20191005
  Serious: Yes (Life-Threatening, Hospitalization)
  Sender: FDA-Public Use
  Company Number: US-MYLANLABS-2019M1085100

PATIENT
  Age: 71 Year
  Sex: Female

DRUGS (7)
  1. NOREPINEPHRINE. [Suspect]
     Active Substance: NOREPINEPHRINE
     Indication: CARDIAC ARREST
     Dosage: DRIP
     Route: 065
  2. AMIODARONE [Concomitant]
     Active Substance: AMIODARONE
     Indication: VENTRICULAR FIBRILLATION
     Dosage: DRIPS
     Route: 065
  3. DOPAMINE [Suspect]
     Active Substance: DOPAMINE HYDROCHLORIDE
     Indication: STRESS CARDIOMYOPATHY
     Dosage: DRIP
     Route: 065
  4. MILRINONE [Suspect]
     Active Substance: MILRINONE
     Indication: STRESS CARDIOMYOPATHY
     Dosage: DRIP
     Route: 065
  5. MILRINONE [Suspect]
     Active Substance: MILRINONE
     Indication: EJECTION FRACTION DECREASED
  6. DOPAMINE [Suspect]
     Active Substance: DOPAMINE HYDROCHLORIDE
     Indication: EJECTION FRACTION DECREASED
  7. NOREPINEPHRINE. [Suspect]
     Active Substance: NOREPINEPHRINE
     Indication: EJECTION FRACTION DECREASED

REACTIONS (1)
  - Drug ineffective [Unknown]
